FAERS Safety Report 15347542 (Version 9)
Quarter: 2019Q1

REPORT INFORMATION
  Report Type: Spontaneous
  Country: SK (occurrence: SK)
  Receive Date: 20180904
  Receipt Date: 20190212
  Transmission Date: 20190417
  Serious: Yes (Hospitalization, Other)
  Sender: FDA-Public Use
  Company Number: SK-PFIZER INC-2018350971

PATIENT
  Age: 14 Year
  Sex: Female

DRUGS (4)
  1. PARACETAMOL [Suspect]
     Active Substance: ACETAMINOPHEN
     Indication: EAR PAIN
  2. IBUPROFEN. [Suspect]
     Active Substance: IBUPROFEN
     Indication: FEBRILE INFECTION
     Dosage: 400 MG, EVERY 4 HOURS CYCLIC WITH PARACETAMOL
     Route: 048
  3. IBUPROFEN. [Suspect]
     Active Substance: IBUPROFEN
     Indication: EAR PAIN
  4. PARACETAMOL [Suspect]
     Active Substance: ACETAMINOPHEN
     Indication: FEBRILE INFECTION
     Dosage: 500 MG, EVERY 4 HOUR CYCLIC WITH IBUPROFEN
     Route: 048

REACTIONS (3)
  - Liver disorder [Recovered/Resolved]
  - Drug ineffective [Unknown]
  - Acute kidney injury [Recovered/Resolved]
